FAERS Safety Report 16993976 (Version 1)
Quarter: 2019Q4

REPORT INFORMATION
  Report Type: Report from Study
  Country: AR (occurrence: AR)
  Receive Date: 20191105
  Receipt Date: 20191105
  Transmission Date: 20200122
  Serious: Yes (Disabling, Other)
  Sender: FDA-Public Use
  Company Number: NVSC2019AR020867

PATIENT
  Sex: Female

DRUGS (2)
  1. GALVUS MET [Suspect]
     Active Substance: METFORMIN HYDROCHLORIDE\VILDAGLIPTIN
     Indication: DIABETES MELLITUS
     Dosage: 1 DF, QD (APPROXIMATELY 15 YEARS AGO)
     Route: 065
  2. GALVUS MET [Suspect]
     Active Substance: METFORMIN HYDROCHLORIDE\VILDAGLIPTIN
     Dosage: 2 DF, BID (1 AT NOON AND 1 AT NIGHT)
     Route: 065

REACTIONS (11)
  - Memory impairment [Unknown]
  - Thrombosis [Unknown]
  - Gait disturbance [Unknown]
  - Hypoaesthesia [Unknown]
  - Road traffic accident [Unknown]
  - Syncope [Unknown]
  - Cerebral thrombosis [Unknown]
  - Feeling abnormal [Unknown]
  - Lower limb fracture [Unknown]
  - Drug ineffective [Unknown]
  - Fall [Unknown]
